FAERS Safety Report 10367450 (Version 1)
Quarter: 2014Q3

REPORT INFORMATION
  Report Type: Spontaneous
  Country: US (occurrence: None)
  Receive Date: 20140806
  Receipt Date: 20140806
  Transmission Date: 20150326
  Serious: No
  Sender: FDA-Public Use
  Company Number: None

PATIENT
  Age: 40 Year
  Sex: Male

DRUGS (3)
  1. DIETARY SUPPLEMENT [Suspect]
     Active Substance: DIETARY SUPPLEMENT
     Indication: MUSCLE BUILDING THERAPY
     Dates: start: 20130101, end: 20130417
  2. DIETARY SUPPLEMENT [Concomitant]
     Active Substance: DIETARY SUPPLEMENT
     Indication: MUSCLE BUILDING THERAPY
     Dates: start: 20130307, end: 20130417
  3. DIETARY SUPPLEMENT [Suspect]
     Active Substance: DIETARY SUPPLEMENT
     Indication: MUSCLE BUILDING THERAPY
     Dates: start: 20130215, end: 20130417

REACTIONS (5)
  - Blood alkaline phosphatase increased [None]
  - Aspartate aminotransferase increased [None]
  - Drug-induced liver injury [None]
  - Jaundice [None]
  - Alanine aminotransferase increased [None]

NARRATIVE: CASE EVENT DATE: 20130417
